FAERS Safety Report 8926378 (Version 2)
Quarter: 2012Q4

REPORT INFORMATION
  Report Type: 
  Country: US (occurrence: US)
  Receive Date: 20121127
  Receipt Date: 20121212
  Transmission Date: 20130627
  Serious: Yes (Hospitalization, Other)
  Sender: FDA-Public Use
  Company Number: US-PFIZER INC-2012293476

PATIENT
  Age: 61 Year
  Sex: Male
  Weight: 70.75 kg

DRUGS (6)
  1. REVATIO [Suspect]
     Indication: PULMONARY ARTERIAL HYPERTENSION
     Dosage: 20 mg, 3x/day
     Route: 048
     Dates: start: 2012
  2. REVATIO [Suspect]
     Dosage: UNK
  3. LETAIRIS [Suspect]
     Indication: PULMONARY ARTERIAL HYPERTENSION
     Dosage: UNK, daily
  4. LETAIRIS [Suspect]
     Dosage: UNK
  5. COREG [Suspect]
     Dosage: UNK
  6. MILRINONE [Suspect]
     Dosage: UNK

REACTIONS (2)
  - Cardiac fibrillation [Unknown]
  - Arrhythmia [Unknown]
